FAERS Safety Report 20038113 (Version 1)
Quarter: 2021Q4

REPORT INFORMATION
  Report Type: Spontaneous
  Country: DE (occurrence: DE)
  Receive Date: 20211105
  Receipt Date: 20211105
  Transmission Date: 20220303
  Serious: Yes (Hospitalization)
  Sender: FDA-Public Use
  Company Number: DE-ADRED-06828-01

PATIENT
  Age: 28 Year
  Sex: Female
  Weight: 79.8 kg

DRUGS (2)
  1. FLUOROURACIL [Suspect]
     Active Substance: FLUOROURACIL
     Indication: Product used for unknown indication
     Dosage: UNK, 1000 MG, SCHEMA, INJEKTIONS-/INFUSIONSL?SUNG
  2. MITOMYCIN [Suspect]
     Active Substance: MITOMYCIN
     Indication: Product used for unknown indication
     Dosage: UNK, 10 MG, SCHEMA, INJEKTIONS-/INFUSIONSL?SUNG

REACTIONS (4)
  - Administration site discomfort [Unknown]
  - General physical health deterioration [Unknown]
  - Dysuria [Unknown]
  - Diarrhoea [Unknown]
